FAERS Safety Report 4998583-6 (Version None)
Quarter: 2006Q2

REPORT INFORMATION
  Report Type: 
  Country: None (occurrence: None)
  Receive Date: 20060508
  Receipt Date: 20060503
  Transmission Date: 20061013
  Serious: Yes (Hospitalization, Other)
  Sender: FDA-Public Use
  Company Number: GBWYE598804MAY06

PATIENT
  Age: 92 Year
  Sex: Female

DRUGS (4)
  1. IBUPROFEN [Suspect]
     Indication: BACK PAIN
     Dosage: 400 MG 3X PER 1 DAY ORAL
     Route: 048
     Dates: end: 20060324
  2. INDAPAMIDE (INDAPAMIDE, , 0) [Suspect]
     Dosage: 2.5 MG 1X PER 1 DAY ORAL
     Route: 048
     Dates: end: 20060324
  3. AMLODIPINE [Concomitant]
  4. ATENOLOL [Concomitant]

REACTIONS (5)
  - BLOOD POTASSIUM DECREASED [None]
  - BLOOD SODIUM DECREASED [None]
  - BLOOD UREA INCREASED [None]
  - CONFUSIONAL STATE [None]
  - MALAISE [None]
